FAERS Safety Report 23697887 (Version 3)
Quarter: 2024Q3

REPORT INFORMATION
  Report Type: Spontaneous
  Country: US (occurrence: US)
  Receive Date: 20240402
  Receipt Date: 20240704
  Transmission Date: 20241016
  Serious: Yes (Other)
  Sender: PFIZER
  Company Number: US-PFIZER INC-PV202400042860

PATIENT
  Age: 71 Year
  Sex: Female
  Weight: 51.338 kg

DRUGS (4)
  1. IBRANCE [Suspect]
     Active Substance: PALBOCICLIB
     Indication: Breast cancer female
     Dosage: 125 MG, 1X/DAY (DAILY FOR A WEEK)
     Route: 048
     Dates: start: 20240216, end: 20240224
  2. ANAPRAZOLE [Concomitant]
     Indication: Neoplasm malignant
     Dosage: UNK, 1X/DAY
  3. VITAMIN D3 [Concomitant]
     Active Substance: CHOLECALCIFEROL
     Indication: Bone disorder
     Dosage: 5000 IU, 1X/DAY
  4. VITAMIN B12 [Concomitant]
     Active Substance: CYANOCOBALAMIN
     Dosage: 1 CAP 1 DAILY

REACTIONS (2)
  - Spinal fracture [Recovered/Resolved]
  - White blood cell count decreased [Recovered/Resolved with Sequelae]

NARRATIVE: CASE EVENT DATE: 20240201
